FAERS Safety Report 18452267 (Version 1)
Quarter: 2020Q4

REPORT INFORMATION
  Report Type: Spontaneous
  Country: US (occurrence: US)
  Receive Date: 20201102
  Receipt Date: 20201102
  Transmission Date: 20210114
  Serious: Yes (Hospitalization)
  Sender: FDA-Public Use
  Company Number: US-BOIRON INC.-2020BOR00197

PATIENT

DRUGS (1)
  1. OSCILLOCOCCINUM [Suspect]
     Active Substance: CAIRINA MOSCHATA HEART/LIVER AUTOLYSATE
     Indication: INFLUENZA

REACTIONS (4)
  - Oesophageal rupture [Unknown]
  - Transfusion [Recovered/Resolved]
  - Haemoptysis [Unknown]
  - Cholecystitis infective [Unknown]
